FAERS Safety Report 12332295 (Version 1)
Quarter: 2016Q2

REPORT INFORMATION
  Report Type: Spontaneous
  Country: BE (occurrence: FR)
  Receive Date: 20160504
  Receipt Date: 20160504
  Transmission Date: 20160815
  Serious: Yes (Other)
  Sender: FDA-Public Use
  Company Number: BE-CORDEN PHARMA LATINA S.P.A.-FR-2016COR000134

PATIENT
  Age: 19 Year
  Sex: Female

DRUGS (3)
  1. CISPLATIN. [Suspect]
     Active Substance: CISPLATIN
     Indication: OVARIAN GERM CELL TUMOUR MIXED
     Dosage: UNK, 4 CYCLES
     Dates: start: 2009
  2. BLEOMYCIN [Suspect]
     Active Substance: BLEOMYCIN SULFATE
     Indication: OVARIAN GERM CELL TUMOUR MIXED
     Dosage: UNK, 4 CYCLES
     Dates: start: 2009
  3. ETOPOSIDE. [Suspect]
     Active Substance: ETOPOSIDE
     Indication: OVARIAN GERM CELL TUMOUR MIXED
     Dosage: UNK, 4 CYCLES
     Dates: start: 2009

REACTIONS (4)
  - Ovarian germ cell teratoma [Recovered/Resolved]
  - Pelvic mass [Recovered/Resolved]
  - Metastases to abdominal wall [Recovered/Resolved]
  - Metastases to abdominal cavity [Recovered/Resolved]

NARRATIVE: CASE EVENT DATE: 2011
